FAERS Safety Report 19399321 (Version 1)
Quarter: 2021Q2

REPORT INFORMATION
  Report Type: Spontaneous
  Country: US (occurrence: US)
  Receive Date: 20210610
  Receipt Date: 20210610
  Transmission Date: 20210717
  Serious: Yes (Hospitalization)
  Sender: FDA-Public Use
  Company Number: US-FRESENIUS MEDICAL CARE RENAL THERAPIES GROUP-FMC-2104-000582

PATIENT
  Age: 70 Year
  Sex: Male
  Weight: 120 kg

DRUGS (3)
  1. DELFLEX WITH DEXTROSE 2.5% LOW MAGNESIUM LOW CALCIUM [Suspect]
     Active Substance: CALCIUM CHLORIDE\DEXTROSE\MAGNESIUM CHLORIDE\SODIUM CHLORIDE\SODIUM LACTATE
     Indication: END STAGE RENAL DISEASE
     Dosage: FILL VOLUME = 2500 ML, FILLS = 5, LAST FILL = N/A, DAYTIME EXCHANGE = N/A, DWELL TIME = 2.0 HOURS.
     Route: 033
     Dates: start: 20201024
  2. DELFLEX WITH DEXTROSE 1.5% LOW MAGNESIUM LOW CALCIUM [Suspect]
     Active Substance: CALCIUM CHLORIDE\DEXTROSE\MAGNESIUM CHLORIDE\SODIUM CHLORIDE\SODIUM LACTATE
     Indication: END STAGE RENAL DISEASE
     Dosage: FILL VOLUME = 2500 ML, FILLS = 5, LAST FILL = N/A, DAYTIME EXCHANGE = N/A, DWELL TIME = 2.0 HOURS.
     Route: 033
     Dates: start: 20201024
  3. DELFLEX WITH DEXTROSE 4.25% LOW MAGNESIUM LOW CALCIUM [Suspect]
     Active Substance: CALCIUM CHLORIDE\DEXTROSE\MAGNESIUM CHLORIDE\SODIUM CHLORIDE\SODIUM LACTATE
     Indication: END STAGE RENAL DISEASE
     Dosage: FILL VOLUME = 2500 ML, FILLS = 5, LAST FILL = N/A, DAYTIME EXCHANGE = N/A, DWELL TIME = 2.0 HOURS.
     Route: 033
     Dates: start: 20201024

REACTIONS (1)
  - Fungal peritonitis [Recovered/Resolved]
